FAERS Safety Report 8282219-5 (Version None)
Quarter: 2012Q2

REPORT INFORMATION
  Report Type: 
  Country: None (occurrence: None)
  Receive Date: 20120410
  Receipt Date: 20120326
  Transmission Date: 20120825
  Serious: Yes (Other)
  Sender: FDA-Public Use
  Company Number: 2012-033095

PATIENT
  Age: 71 Year
  Sex: Male
  Weight: 102.1 kg

DRUGS (6)
  1. ZYRTEC [Concomitant]
  2. LIPITOR [Concomitant]
  3. NORVASC [Concomitant]
  4. XARELTO [Suspect]
     Indication: ATRIAL FIBRILLATION
     Dosage: 20 MG, HS, ORAL
     Route: 048
     Dates: start: 20120227
  5. ATENOLOL [Concomitant]
  6. ASPIRIN [Suspect]
     Indication: STENT PLACEMENT
     Dosage: 81 MG, HS
     Dates: start: 20120319

REACTIONS (5)
  - GENITAL LESION [None]
  - BLISTER [None]
  - HAEMORRHOIDAL HAEMORRHAGE [None]
  - ABDOMINAL PAIN UPPER [None]
  - INTENTIONAL DRUG MISUSE [None]
